FAERS Safety Report 24946255 (Version 1)
Quarter: 2025Q1

REPORT INFORMATION
  Report Type: Spontaneous
  Country: GB (occurrence: GB)
  Receive Date: 20250210
  Receipt Date: 20250210
  Transmission Date: 20250408
  Serious: No
  Sender: ALKEM
  Company Number: None

PATIENT
  Age: 79 Year
  Sex: Male

DRUGS (1)
  1. LINEZOLID [Suspect]
     Active Substance: LINEZOLID
     Indication: Osteomyelitis
     Dosage: 600 MILLIGRAM, BID, TABLET
     Route: 065
     Dates: start: 20240123, end: 20240208

REACTIONS (2)
  - Oropharyngeal pain [Recovered/Resolved]
  - Blood lactic acid increased [Recovered/Resolved]
